FAERS Safety Report 14996146 (Version 1)
Quarter: 2018Q2

REPORT INFORMATION
  Report Type: Spontaneous
  Country: DE (occurrence: DE)
  Receive Date: 20180611
  Receipt Date: 20180611
  Transmission Date: 20180711
  Serious: Yes (Hospitalization)
  Sender: FDA-Public Use
  Company Number: DE-TEVA-2018-DE-904769

PATIENT
  Age: 81 Year
  Sex: Male

DRUGS (6)
  1. ALENDRONS?URE-RATIOPHARM 70 MG TABLETTEN [Suspect]
     Active Substance: ALENDRONIC ACID
     Route: 065
  2. BUDESONIDE. [Concomitant]
     Active Substance: BUDESONIDE
     Route: 065
  3. VALSARTAN. [Suspect]
     Active Substance: VALSARTAN
     Dosage: 80 MILLIGRAM DAILY;
     Route: 065
  4. PANTOPRAZOL [Concomitant]
     Active Substance: PANTOPRAZOLE SODIUM
     Dosage: 40 MILLIGRAM DAILY;
     Route: 065
  5. METOPROLOL. [Suspect]
     Active Substance: METOPROLOL
     Route: 065
  6. APIXABAN [Concomitant]
     Active Substance: APIXABAN
     Dosage: 1-0-1-0

REACTIONS (3)
  - Dizziness [Unknown]
  - Circulatory collapse [Unknown]
  - Hypotension [Unknown]
